FAERS Safety Report 9858105 (Version 1)
Quarter: 2014Q1

REPORT INFORMATION
  Report Type: Spontaneous
  Country: US (occurrence: None)
  Receive Date: 20140129
  Receipt Date: 20140129
  Transmission Date: 20141002
  Serious: Yes (Other)
  Sender: FDA-Public Use
  Company Number: None

PATIENT
  Age: 72 Year
  Sex: Female
  Weight: 61.24 kg

DRUGS (1)
  1. CIPRO [Suspect]
     Indication: URINARY TRACT INFECTION
     Dosage: 2 PER DAY, BY MOUTH
     Dates: start: 20121011, end: 20141213

REACTIONS (3)
  - Gait disturbance [None]
  - Tendon pain [None]
  - Gait disturbance [None]
